FAERS Safety Report 22860771 (Version 2)
Quarter: 2023Q4

REPORT INFORMATION
  Report Type: Spontaneous
  Country: US (occurrence: US)
  Receive Date: 20230824
  Receipt Date: 20231012
  Transmission Date: 20240110
  Serious: No
  Sender: FDA-Public Use
  Company Number: US-PFIZER INC-202300280229

PATIENT
  Age: 36 Year
  Sex: Female

DRUGS (2)
  1. SOMAVERT [Suspect]
     Active Substance: PEGVISOMANT
     Indication: Acromegaly
     Dosage: INJECT 30 MG UNDER THE SKIN DAILY (MUST BE USED WITHIN 6 HOURS AFTER RECONSTITUTION)
     Route: 058
  2. SOMAVERT [Suspect]
     Active Substance: PEGVISOMANT
     Indication: Gigantism

REACTIONS (2)
  - Drug dose omission by device [Unknown]
  - Syringe issue [Unknown]
